FAERS Safety Report 20843847 (Version 1)
Quarter: 2022Q2

REPORT INFORMATION
  Report Type: Spontaneous
  Country: ES (occurrence: ES)
  Receive Date: 20220518
  Receipt Date: 20220518
  Transmission Date: 20220721
  Serious: Yes (Other)
  Sender: FDA-Public Use
  Company Number: None

PATIENT
  Age: 13 Year
  Sex: Female

DRUGS (2)
  1. VINCRISTINE [Suspect]
     Active Substance: VINCRISTINE
     Indication: Acute lymphocytic leukaemia
     Dosage: 1.5 MG/M2 IV ON CYCLE DAYS 8, 15, 22, AND 29 , VINCRISTINA (809A) , UNIT DOSE : 1.5 MG/M2 , FREQUENC
     Route: 042
     Dates: start: 20220105, end: 20220126
  2. DAUNORUBICIN [Suspect]
     Active Substance: DAUNORUBICIN
     Indication: Acute lymphocytic leukaemia
     Dosage: 30 MG/M2 IV ON CYCLE DAYS 8, 15, 22, AND 29 , DAUNORUBICINA (177A) , UNIT DOSE : 30 MG/M2 , FREQUENC
     Route: 042
     Dates: start: 20220105, end: 20220126

REACTIONS (1)
  - Hepatitis [Recovered/Resolved]

NARRATIVE: CASE EVENT DATE: 20220109
